FAERS Safety Report 4394399-2 (Version None)
Quarter: 2004Q3

REPORT INFORMATION
  Report Type: 
  Country: None (occurrence: None)
  Receive Date: 20040709
  Receipt Date: 20040709
  Transmission Date: 20050211
  Serious: Yes (Hospitalization)
  Sender: FDA-Public Use
  Company Number: None

PATIENT
  Sex: Female
  Weight: 76.6579 kg

DRUGS (5)
  1. IRINOTECAN 190 MG [Suspect]
     Indication: NON-SMALL CELL LUNG CANCER
     Dosage: IRINOTECAN Q 21 DAYS INTRAVENOUS
     Route: 042
     Dates: start: 20040512, end: 20040602
  2. EPIRUBICIN [Suspect]
     Indication: NON-SMALL CELL LUNG CANCER
     Dosage: EPIRUBICIN Q 21 DAYS INTRAVENOUS
     Route: 042
     Dates: start: 20040512, end: 20040602
  3. FLOVENT [Concomitant]
  4. KEFLEX [Concomitant]
  5. . [Concomitant]

REACTIONS (1)
  - PNEUMONIA [None]
